FAERS Safety Report 9205364 (Version 1)
Quarter: 2013Q2

REPORT INFORMATION
  Report Type: Spontaneous
  Country: DE (occurrence: DE)
  Receive Date: 20130402
  Receipt Date: 20130402
  Transmission Date: 20140414
  Serious: Yes (Hospitalization)
  Sender: FDA-Public Use
  Company Number: DE-GILEAD-2013-0072827

PATIENT
  Sex: Female

DRUGS (4)
  1. RANOLAZINE [Suspect]
     Indication: CORONARY ARTERY DISEASE
     Dosage: 875 MG, QD
     Route: 048
     Dates: start: 2012, end: 201302
  2. RANOLAZINE [Suspect]
     Dosage: 750 MG, QD
     Route: 048
     Dates: start: 201201, end: 2012
  3. RANOLAZINE [Suspect]
     Dosage: 1000 MG, QD
     Route: 048
     Dates: start: 2012, end: 2012
  4. RANOLAZINE [Suspect]
     Dosage: 375 MG, QD
     Route: 048
     Dates: start: 201302

REACTIONS (1)
  - Pancreatitis [Not Recovered/Not Resolved]
